FAERS Safety Report 4794484-7 (Version None)
Quarter: 2005Q4

REPORT INFORMATION
  Report Type: 
  Country: None (occurrence: None)
  Receive Date: 20051011
  Receipt Date: 20051003
  Transmission Date: 20060501
  Serious: Yes (Other)
  Sender: FDA-Public Use
  Company Number: 200518760GDDC

PATIENT
  Age: 71 Year
  Sex: Female

DRUGS (2)
  1. METRONIDAZOLE [Suspect]
     Indication: CLOSTRIDIUM COLITIS
     Route: 048
  2. AMIODARONE [Suspect]
     Indication: ATRIAL FIBRILLATION
     Dosage: DOSE: 450 MG BOLUS

REACTIONS (8)
  - CARDIOTOXICITY [None]
  - DRUG INTERACTION [None]
  - ELECTROCARDIOGRAM QT PROLONGED [None]
  - ELECTROCARDIOGRAM R ON T PHENOMENON [None]
  - MITRAL VALVE INCOMPETENCE [None]
  - TORSADE DE POINTES [None]
  - TRICUSPID VALVE INCOMPETENCE [None]
  - VENTRICULAR TACHYCARDIA [None]
